FAERS Safety Report 16433830 (Version 1)
Quarter: 2019Q2

REPORT INFORMATION
  Report Type: Spontaneous
  Country: US (occurrence: US)
  Receive Date: 20190614
  Receipt Date: 20190614
  Transmission Date: 20190711
  Serious: Yes (Hospitalization)
  Sender: FDA-Public Use
  Company Number: US-009507513-1906USA004470

PATIENT
  Age: 34 Year
  Sex: Female

DRUGS (3)
  1. PREGNYL [Suspect]
     Active Substance: CHORIOGONADOTROPIN ALFA
     Indication: IN VITRO FERTILISATION
     Dosage: UNK IM
     Route: 030
  2. FOLLITROPIN ALFA [Suspect]
     Active Substance: FOLLITROPIN
     Indication: IN VITRO FERTILISATION
     Dosage: UNK UNK
     Route: 065
  3. LEUPROLIDE [Suspect]
     Active Substance: LEUPROLIDE
     Indication: IN VITRO FERTILISATION
     Dosage: UNK UNK
     Route: 065

REACTIONS (3)
  - Intracardiac thrombus [Unknown]
  - Ovarian hyperstimulation syndrome [Recovered/Resolved]
  - Ischaemic stroke [Unknown]
